FAERS Safety Report 17973425 (Version 3)
Quarter: 2020Q3

REPORT INFORMATION
  Report Type: Spontaneous
  Country: JP (occurrence: JP)
  Receive Date: 20200702
  Receipt Date: 20200730
  Transmission Date: 20201103
  Serious: Yes (Hospitalization)
  Sender: FDA-Public Use
  Company Number: JP-ELI_LILLY_AND_COMPANY-JP202006011983

PATIENT
  Sex: Male

DRUGS (4)
  1. DULOXETINE HYDROCHLORIDE. [Suspect]
     Active Substance: DULOXETINE HYDROCHLORIDE
     Indication: DEPRESSION
     Dosage: 20 MG, DAILY
     Route: 048
     Dates: end: 20200626
  2. RISPERIDONE. [Concomitant]
     Active Substance: RISPERIDONE
     Indication: DELIRIUM
     Dosage: 0.5 MG
     Route: 048
     Dates: end: 20200626
  3. REFLEX [Suspect]
     Active Substance: MIRTAZAPINE
     Indication: DEPRESSION
     Dosage: 30 MG, DAILY
     Dates: end: 20200626
  4. SAN^OSHASHINTO [Concomitant]
     Active Substance: HERBALS
     Indication: CONSTIPATION
     Dosage: 9 G, DAILY
     Dates: end: 20200626

REACTIONS (2)
  - Eosinophilic pneumonia chronic [Recovered/Resolved]
  - Pneumonitis [Recovered/Resolved]
